FAERS Safety Report 10076903 (Version 3)
Quarter: 2014Q2

REPORT INFORMATION
  Report Type: Spontaneous
  Country: US (occurrence: US)
  Receive Date: 20140414
  Receipt Date: 20140620
  Transmission Date: 20141212
  Serious: Yes (Other)
  Sender: FDA-Public Use
  Company Number: US-GLAXOSMITHKLINE-A1069043A

PATIENT
  Age: 76 Year
  Sex: Female

DRUGS (3)
  1. NICODERM CQ CLEAR 21MG [Suspect]
     Indication: SMOKING CESSATION THERAPY
     Route: 062
     Dates: start: 20140327, end: 201405
  2. NICOTINE [Suspect]
     Indication: SMOKING CESSATION THERAPY
     Route: 062
  3. NICODERM CQ CLEAR 14MG [Suspect]
     Indication: SMOKING CESSATION THERAPY
     Route: 002
     Dates: start: 20140614

REACTIONS (13)
  - Mental impairment [Recovered/Resolved]
  - Nervousness [Recovered/Resolved]
  - Anxiety [Recovered/Resolved]
  - Crying [Recovered/Resolved]
  - Weight increased [Unknown]
  - Drug administration error [Recovered/Resolved]
  - Application site rash [Recovered/Resolved]
  - Application site pruritus [Recovered/Resolved]
  - Application site erythema [Not Recovered/Not Resolved]
  - Application site reaction [Not Recovered/Not Resolved]
  - Nicotine dependence [Recovered/Resolved]
  - Hunger [Unknown]
  - Drug ineffective [Unknown]
